FAERS Safety Report 23983923 (Version 3)
Quarter: 2024Q3

REPORT INFORMATION
  Report Type: Spontaneous
  Country: US (occurrence: US)
  Receive Date: 20240618
  Receipt Date: 20240715
  Transmission Date: 20241017
  Serious: Yes (Death, Hospitalization)
  Sender: Day One Biopharmaceuticals
  Company Number: US-DAY ONE BIOPHARMACEUTICALS, INC.-2024US000304

PATIENT

DRUGS (2)
  1. OJEMDA [Suspect]
     Active Substance: TOVORAFENIB
     Indication: Brain neoplasm malignant
     Dosage: 6 TABLETS, 1/WEEK
     Route: 048
  2. OJEMDA [Suspect]
     Active Substance: TOVORAFENIB
     Dosage: 600 MG, 1/WEEK; 24ML OF PFOS
     Route: 048
     Dates: start: 20240621

REACTIONS (4)
  - Death [Fatal]
  - Dysphagia [Unknown]
  - Post procedural complication [Unknown]
  - Weight decreased [Unknown]

NARRATIVE: CASE EVENT DATE: 20240703
